FAERS Safety Report 14609646 (Version 1)
Quarter: 2018Q1

REPORT INFORMATION
  Report Type: Spontaneous
  Country: US (occurrence: US)
  Receive Date: 20180307
  Receipt Date: 20180307
  Transmission Date: 20180509
  Serious: No
  Sender: FDA-Public Use
  Company Number: US-ALLERGAN-1803256US

PATIENT
  Age: 69 Year
  Sex: Female

DRUGS (7)
  1. PRAVASTATIN. [Concomitant]
     Active Substance: PRAVASTATIN
     Indication: BLOOD CHOLESTEROL INCREASED
  2. MULTIVITAMIN [Concomitant]
     Active Substance: VITAMINS
  3. VITAMIN B12 [Concomitant]
     Active Substance: CYANOCOBALAMIN
  4. CALCIUM [Concomitant]
     Active Substance: CALCIUM
  5. LISINOPRIL. [Concomitant]
     Active Substance: LISINOPRIL
     Indication: HYPERTENSION
  6. VIIBRYD [Suspect]
     Active Substance: VILAZODONE HYDROCHLORIDE
     Indication: DEPRESSION
     Dosage: 20 MG, QD
     Route: 048
     Dates: start: 20180108
  7. WARFARIN [Concomitant]
     Active Substance: WARFARIN

REACTIONS (1)
  - Spinal column stenosis [Not Recovered/Not Resolved]

NARRATIVE: CASE EVENT DATE: 20180110
